FAERS Safety Report 8791291 (Version 1)
Quarter: 2012Q4

REPORT INFORMATION
  Report Type: Spontaneous
  Country: TW (occurrence: None)
  Receive Date: 20120911
  Receipt Date: 20120911
  Transmission Date: 20130627
  Serious: Yes (Hospitalization)
  Sender: FDA-Public Use
  Company Number: 2012P1055848

PATIENT
  Age: 65 Year
  Sex: Female

DRUGS (1)
  1. AMIODARONE [Suspect]
     Indication: VENTRICULAR ARRHYTHMIA

REACTIONS (8)
  - Ascites [None]
  - Pleural effusion [None]
  - Blood urea increased [None]
  - Blood creatinine increased [None]
  - Renal cyst [None]
  - Hepatic congestion [None]
  - Blood thyroid stimulating hormone increased [None]
  - Thyroxine free decreased [None]
